FAERS Safety Report 8169800-9 (Version None)
Quarter: 2012Q1

REPORT INFORMATION
  Report Type: 
  Country: None (occurrence: None)
  Receive Date: 20120228
  Receipt Date: 20120217
  Transmission Date: 20120608
  Serious: Yes (Hospitalization, Other)
  Sender: FDA-Public Use
  Company Number: GB-BRISTOL-MYERS SQUIBB COMPANY-16248221

PATIENT
  Age: 61 Year
  Sex: Male

DRUGS (9)
  1. DOXAZOSIN [Concomitant]
     Indication: HYPERTENSION
     Route: 048
     Dates: start: 20070101
  2. PREGABALIN [Concomitant]
     Indication: PAIN
     Route: 048
     Dates: start: 20090101
  3. ATENOLOL AND CHLORTHALIDONE [Concomitant]
     Indication: CEREBROVASCULAR ACCIDENT PROPHYLAXIS
     Route: 048
     Dates: start: 20100101
  4. FERROUS FUMARATE [Concomitant]
     Route: 048
  5. ABILIFY [Suspect]
     Indication: DEPRESSED MOOD
     Dosage: INCREASED TO 15MG + ON 6OCT11 20 MG
     Route: 048
     Dates: start: 20110906, end: 20111020
  6. BISOPROLOL FUMARATE [Concomitant]
     Indication: HYPERTENSION
     Route: 048
  7. AMLODIPINE [Concomitant]
     Indication: HYPERTENSION
     Route: 048
     Dates: start: 20090101
  8. SERTRALINE HYDROCHLORIDE [Concomitant]
     Indication: DEPRESSION
     Route: 048
     Dates: start: 20060101
  9. ATORVASTATIN [Concomitant]
     Indication: BLOOD CHOLESTEROL INCREASED
     Dosage: AT NIGHT
     Route: 048
     Dates: start: 20100101

REACTIONS (4)
  - PSYCHOMOTOR RETARDATION [None]
  - DEPRESSED MOOD [None]
  - BALANCE DISORDER [None]
  - FALL [None]
